FAERS Safety Report 5307335-9 (Version None)
Quarter: 2007Q2

REPORT INFORMATION
  Report Type: 
  Country: None (occurrence: None)
  Receive Date: 20070425
  Receipt Date: 20070418
  Transmission Date: 20071010
  Serious: Yes (Hospitalization)
  Sender: FDA-Public Use
  Company Number: US-MERCK-0704USA01460

PATIENT
  Age: 74 Year
  Sex: Male

DRUGS (5)
  1. ZETIA [Suspect]
     Route: 048
     Dates: start: 20060101
  2. GEMFIBROZIL [Concomitant]
     Route: 065
  3. COZAAR [Concomitant]
     Route: 048
  4. QUINAPRIL HYDROCHLORIDE [Concomitant]
     Route: 065
  5. [THERAPY UNSPECIFIED] [Concomitant]
     Route: 065

REACTIONS (2)
  - COELIAC DISEASE [None]
  - MALABSORPTION [None]
